FAERS Safety Report 25911236 (Version 1)
Quarter: 2025Q4

REPORT INFORMATION
  Report Type: Spontaneous
  Country: EU (occurrence: EU)
  Receive Date: 20251013
  Receipt Date: 20251013
  Transmission Date: 20260118
  Serious: Yes (Hospitalization, Other)
  Sender: JOHNSON AND JOHNSON
  Company Number: None

PATIENT
  Age: 53 Year
  Sex: Male

DRUGS (3)
  1. RISPERDAL [Suspect]
     Active Substance: RISPERIDONE
     Indication: Schizophrenia
     Dosage: UNKNOWN DOSE
     Route: 048
     Dates: start: 20101214
  2. COCAINE [Suspect]
     Active Substance: COCAINE
     Indication: Product used for unknown indication
     Dosage: UNKNOWN
     Route: 048
     Dates: end: 20250904
  3. LITHIUM [Suspect]
     Active Substance: LITHIUM
     Indication: Bipolar disorder
     Dosage: SINGLE DOSE; DOSAGE UNKNOWN
     Route: 048

REACTIONS (7)
  - Extrapyramidal disorder [Recovering/Resolving]
  - Acute kidney injury [Recovered/Resolved]
  - Atrioventricular block complete [Recovered/Resolved]
  - Rhabdomyolysis [Recovered/Resolved]
  - Bradycardia [Recovered/Resolved]
  - Drug abuse [Recovering/Resolving]
  - Poisoning deliberate [Recovering/Resolving]

NARRATIVE: CASE EVENT DATE: 20250804
